FAERS Safety Report 4754146-9 (Version None)
Quarter: 2005Q3

REPORT INFORMATION
  Report Type: 
  Country: None (occurrence: None)
  Receive Date: 20050826
  Receipt Date: 19990726
  Transmission Date: 20060218
  Serious: Yes (Hospitalization, Other)
  Sender: FDA-Public Use
  Company Number: JP-ABBOTT-05P-087-0306545-00

PATIENT
  Age: 73 Year
  Sex: Male

DRUGS (5)
  1. ERYTHROCIN [Suspect]
     Indication: BRONCHIECTASIS
     Route: 048
     Dates: start: 19970722, end: 19970916
  2. ERYTHROCIN [Suspect]
     Indication: COUGH
  3. ERYTHROCIN [Suspect]
     Indication: DYSPNOEA
  4. AMBROXOL HYDROCHLORIDE [Concomitant]
     Indication: DRUG USE FOR UNKNOWN INDICATION
     Route: 048
     Dates: start: 19970722
  5. CARBOCISTEINE LYSINE [Concomitant]
     Indication: DRUG USE FOR UNKNOWN INDICATION
     Route: 048
     Dates: start: 19970722

REACTIONS (1)
  - APLASTIC ANAEMIA [None]
